FAERS Safety Report 20134554 (Version 2)
Quarter: 2022Q1

REPORT INFORMATION
  Report Type: Spontaneous
  Country: US (occurrence: US)
  Receive Date: 20211201
  Receipt Date: 20220125
  Transmission Date: 20220423
  Serious: No
  Sender: FDA-Public Use
  Company Number: US-DSJP-DSU-2021-138919AA

PATIENT
  Sex: Female

DRUGS (1)
  1. EVOXAC [Suspect]
     Active Substance: CEVIMELINE HYDROCHLORIDE
     Indication: Sjogren^s syndrome
     Dosage: 1 CAPSULE, QID
     Route: 065
     Dates: start: 2019

REACTIONS (4)
  - Dry mouth [Not Recovered/Not Resolved]
  - Insomnia [Not Recovered/Not Resolved]
  - Therapeutic response shortened [Not Recovered/Not Resolved]
  - Product use issue [Not Recovered/Not Resolved]
